FAERS Safety Report 7359644-X (Version None)
Quarter: 2011Q1

REPORT INFORMATION
  Report Type: 
  Country: None (occurrence: None)
  Receive Date: 20110317
  Receipt Date: 20110311
  Transmission Date: 20110831
  Serious: Yes (Other)
  Sender: FDA-Public Use
  Company Number: FR-PFIZER INC-2011003419

PATIENT
  Age: 48 Year
  Sex: Female
  Weight: 65 kg

DRUGS (2)
  1. DELTAZINE WITH EPINEPHRINE [Interacting]
     Indication: ANAESTHESIA
     Dosage: UNK
     Dates: start: 20101101
  2. ZOLOFT [Suspect]
     Indication: DEPRESSION
     Dosage: 50MG, DAILY
     Route: 048

REACTIONS (13)
  - DRUG INTERACTION [None]
  - CHEST PAIN [None]
  - TREMOR [None]
  - RESPIRATORY DISORDER [None]
  - TOXICITY TO VARIOUS AGENTS [None]
  - HEMIPARESIS [None]
  - CHEST DISCOMFORT [None]
  - MUSCLE CONTRACTIONS INVOLUNTARY [None]
  - PALLOR [None]
  - ARRHYTHMIA [None]
  - DISTURBANCE IN ATTENTION [None]
  - MALAISE [None]
  - MEMORY IMPAIRMENT [None]
